FAERS Safety Report 6234393-X (Version None)
Quarter: 2009Q2

REPORT INFORMATION
  Report Type: 
  Country: None (occurrence: None)
  Receive Date: 20090618
  Receipt Date: 20090610
  Transmission Date: 20091009
  Serious: Yes (Hospitalization, Other)
  Sender: FDA-Public Use
  Company Number: US-ROCHE-634616

PATIENT
  Sex: Female
  Weight: 66.2 kg

DRUGS (9)
  1. KLONOPIN [Suspect]
     Indication: EPILEPSY
     Route: 048
     Dates: start: 19800101
  2. KLONOPIN [Suspect]
     Route: 048
     Dates: start: 19970401, end: 20080601
  3. KLONOPIN [Suspect]
     Route: 048
     Dates: start: 20081201
  4. CLONAZEPAM [Suspect]
     Indication: EPILEPSY
     Route: 048
     Dates: end: 20080601
  5. PHENYLEPHRINE [Suspect]
     Route: 048
     Dates: start: 20081116, end: 20081125
  6. MEBARAL [Suspect]
     Indication: EPILEPSY
     Dosage: OTHER INDICATION: SEIZURE
     Route: 048
     Dates: start: 19970101, end: 20080601
  7. MEBARAL [Suspect]
     Route: 048
     Dates: start: 20081201
  8. FOSAMAX [Concomitant]
     Indication: OSTEOPOROSIS
     Route: 048
     Dates: start: 20030101
  9. VIT D [Concomitant]
     Route: 048

REACTIONS (5)
  - CONVULSION [None]
  - DRUG DOSE OMISSION [None]
  - EUPHORIC MOOD [None]
  - HOSPITALISATION [None]
  - LABORATORY TEST ABNORMAL [None]
